FAERS Safety Report 20803978 (Version 1)
Quarter: 2022Q2

REPORT INFORMATION
  Report Type: Spontaneous
  Country: CN (occurrence: CN)
  Receive Date: 20220509
  Receipt Date: 20220509
  Transmission Date: 20220721
  Serious: Yes (Other)
  Sender: FDA-Public Use
  Company Number: CN-009507513-2205CHN001441

PATIENT
  Age: 63 Year
  Sex: Male
  Weight: 60 kg

DRUGS (2)
  1. CILASTATIN SODIUM\IMIPENEM [Suspect]
     Active Substance: CILASTATIN SODIUM\IMIPENEM
     Dosage: POWDER FOR INJECTION, 2 G, TID, IV
     Route: 042
     Dates: start: 20220401, end: 20220406
  2. SODIUM CHLORIDE [Concomitant]
     Active Substance: SODIUM CHLORIDE
     Indication: Lower respiratory tract infection
     Dosage: 250 ML, TID
     Route: 041
     Dates: start: 20220401, end: 20220406

REACTIONS (9)
  - Chills [Recovering/Resolving]
  - Suffocation feeling [Recovering/Resolving]
  - Temperature intolerance [Recovering/Resolving]
  - Oedema peripheral [Unknown]
  - Asthma [Unknown]
  - Heart rate abnormal [Unknown]
  - Blood pressure abnormal [Unknown]
  - Oxygen saturation abnormal [Unknown]
  - Chest discomfort [Recovering/Resolving]

NARRATIVE: CASE EVENT DATE: 20220401
